FAERS Safety Report 7693858-4 (Version None)
Quarter: 2011Q3

REPORT INFORMATION
  Report Type: 
  Country: None (occurrence: None)
  Receive Date: 20110819
  Receipt Date: 20110816
  Transmission Date: 20111222
  Serious: Yes (Hospitalization)
  Sender: FDA-Public Use
  Company Number: DE-SANOFI-AVENTIS-2011SA043196

PATIENT
  Age: 56 Year
  Sex: Male

DRUGS (9)
  1. FLUOROURACIL [Suspect]
     Route: 041
     Dates: start: 20110701, end: 20110701
  2. DOCETAXEL [Suspect]
     Route: 041
     Dates: start: 20110701, end: 20110701
  3. LEUCOVORIN CALCIUM [Suspect]
     Route: 042
     Dates: start: 20110701, end: 20110701
  4. MAGNESIUM SULFATE [Concomitant]
     Indication: PREMEDICATION
     Dosage: TWO TIMES, BEFORE AND AFTER ADMINISTRATION OF OXALIPLATIN
     Route: 065
     Dates: start: 20110701, end: 20110701
  5. DEXAMETHASONE [Concomitant]
     Route: 048
     Dates: start: 20110701, end: 20110701
  6. DEXAMETHASONE [Concomitant]
     Indication: PREMEDICATION
     Route: 042
     Dates: start: 20110701, end: 20110701
  7. CALCIUM GLUCONATE [Concomitant]
     Indication: PREMEDICATION
     Dosage: TWO TIMES, BEFORE AND AFTER ADMINISTRATION OF OXALIPLATIN
     Route: 065
     Dates: start: 20110701, end: 20110701
  8. OXALIPLATIN [Suspect]
     Route: 041
     Dates: start: 20110701, end: 20110701
  9. KEVATRIL [Concomitant]
     Indication: PREMEDICATION
     Route: 042
     Dates: start: 20110701, end: 20110701

REACTIONS (4)
  - CONSTIPATION [None]
  - OESOPHAGEAL ULCER [None]
  - ANAL HAEMORRHAGE [None]
  - OESOPHAGITIS [None]
